FAERS Safety Report 6316543 (Version 1)
Quarter: 2020Q3

REPORT INFORMATION
  Report Type: Report from Study
  Country: US (occurrence: US)
  Receive Date: 20070521
  Receipt Date: 20070521
  Transmission Date: 20201104
  Serious: Yes (Other)
  Sender: FDA-Public Use
  Company Number: US-JNJFOC-20070502766

PATIENT
  Age: 77 Year
  Sex: Male

DRUGS (10)
  1. INFLIXIMAB [Suspect]
     Active Substance: INFLIXIMAB
     Dosage: WEEK 2, AMOUNT ADMINISTERED WAS 250 ML
  2. INFLIXIMAB [Suspect]
     Active Substance: INFLIXIMAB
     Dosage: WEEK 18, ADMINSITERED 250 ML
  3. INFLIXIMAB [Suspect]
     Active Substance: INFLIXIMAB
     Dosage: WEEK 6, ADMINISTERED 250 ML
  4. INFLIXIMAB [Suspect]
     Active Substance: INFLIXIMAB
     Dosage: WEEK 24, ADMINISTERED 250 ML
  5. LOVASTATIN. [Concomitant]
     Active Substance: LOVASTATIN
  6. INFLIXIMAB [Suspect]
     Active Substance: INFLIXIMAB
     Dosage: WEEK 12, ADMINISTERED 250 ML
  7. ASPIRIN. [Concomitant]
     Active Substance: ASPIRIN
  8. SALBUTAMOL [Concomitant]
  9. INFLIXIMAB [Suspect]
     Active Substance: INFLIXIMAB
     Indication: CHRONIC OBSTRUCTIVE PULMONARY DISEASE
     Dosage: WEEK 0, AMOUNT ADMINISTERED WAS 250 ML
  10. LISINOPRIL. [Concomitant]
     Active Substance: LISINOPRIL

REACTIONS (1)
  - Throat cancer [Not Recovered/Not Resolved]

NARRATIVE: CASE EVENT DATE: 20070417
